FAERS Safety Report 16628775 (Version 1)
Quarter: 2019Q3

REPORT INFORMATION
  Report Type: Spontaneous
  Country: NL (occurrence: BE)
  Receive Date: 20190725
  Receipt Date: 20190725
  Transmission Date: 20191004
  Serious: Yes (Hospitalization, Other)
  Sender: FDA-Public Use
  Company Number: BE-FRESENIUS KABI-FK201908100

PATIENT
  Age: 25 Year
  Sex: Female
  Weight: 78 kg

DRUGS (4)
  1. ROCURONIUM BROMIDE. [Suspect]
     Active Substance: ROCURONIUM BROMIDE
     Indication: ENDOTRACHEAL INTUBATION
     Dosage: 40 MILLIGRAM, 1X
     Route: 042
     Dates: start: 20190529, end: 20190529
  2. PROPOFOL (MANUFACTURER UNKNOWN) [Suspect]
     Active Substance: PROPOFOL
     Indication: ENDOTRACHEAL INTUBATION
     Dosage: 180 MILLIGRAM, 1X
     Route: 042
     Dates: start: 20190529, end: 20190529
  3. KETAMINE [Suspect]
     Active Substance: KETAMINE
     Indication: ENDOTRACHEAL INTUBATION
     Dosage: 50 MILLIGRAM, 1X
     Route: 042
     Dates: start: 20190529, end: 20190529
  4. SUFENTANIL CITRATE. [Suspect]
     Active Substance: SUFENTANIL CITRATE
     Indication: ENDOTRACHEAL INTUBATION
     Dosage: 5 MILLIGRAM (OR 1 ML), 1X
     Route: 042
     Dates: start: 20190529, end: 20190529

REACTIONS (5)
  - Rales [Unknown]
  - Hypoventilation [Recovering/Resolving]
  - Erythema [Recovering/Resolving]
  - Oxygen saturation decreased [Recovering/Resolving]
  - Hypotension [Recovering/Resolving]

NARRATIVE: CASE EVENT DATE: 20190529
